FAERS Safety Report 7820379-8 (Version None)
Quarter: 2011Q4

REPORT INFORMATION
  Report Type: 
  Country: None (occurrence: None)
  Receive Date: 20111013
  Receipt Date: 20110928
  Transmission Date: 20120403
  Serious: Yes (Hospitalization)
  Sender: FDA-Public Use
  Company Number: JPI-P-017369

PATIENT
  Age: 62 Year
  Sex: Male
  Weight: 95.709 kg

DRUGS (8)
  1. CLONAZEPAM [Concomitant]
  2. ROSUVASTATIN [Concomitant]
  3. HYDROCORTISONE [Concomitant]
  4. CLOPIDOGREL BISULFATE [Concomitant]
  5. PANTOPRAZOLE [Concomitant]
  6. XYREM [Suspect]
     Indication: INSOMNIA
     Dosage: ORAL
     Route: 048
     Dates: start: 20080815
  7. ACETAMINOPHEN AND HYDROCODONE [Concomitant]
  8. CARISOPRODOL [Concomitant]

REACTIONS (5)
  - INITIAL INSOMNIA [None]
  - DECREASED APPETITE [None]
  - MYOCARDIAL INFARCTION [None]
  - NIGHT SWEATS [None]
  - WEIGHT DECREASED [None]
